FAERS Safety Report 8087966-6 (Version None)
Quarter: 2012Q1

REPORT INFORMATION
  Report Type: 
  Country: None (occurrence: None)
  Receive Date: 20120130
  Receipt Date: 20120124
  Transmission Date: 20120608
  Serious: Yes (Life-Threatening, Hospitalization)
  Sender: FDA-Public Use
  Company Number: JP-ASTRAZENECA-2011SE78945

PATIENT
  Age: 87 Year
  Sex: Male
  Weight: 52 kg

DRUGS (3)
  1. BUFFERIN [Concomitant]
     Indication: MYOCARDIAL INFARCTION
     Route: 048
     Dates: start: 20060725
  2. CETIRIZINE HCL [Concomitant]
     Indication: RHINITIS ALLERGIC
     Route: 048
     Dates: start: 20090123
  3. CRESTOR [Suspect]
     Indication: HYPERCHOLESTEROLAEMIA
     Route: 048
     Dates: start: 20081126, end: 20111123

REACTIONS (2)
  - PNEUMONIA ASPIRATION [None]
  - MUSCULAR WEAKNESS [None]
